FAERS Safety Report 23644979 (Version 1)
Quarter: 2024Q1

REPORT INFORMATION
  Report Type: Spontaneous
  Country: CA (occurrence: CA)
  Receive Date: 20240318
  Receipt Date: 20240318
  Transmission Date: 20240410
  Serious: Yes (Hospitalization, Other)
  Sender: FDA-Public Use
  Company Number: CA-PFIZER INC-202300250430

PATIENT
  Age: 46 Year
  Sex: Female

DRUGS (9)
  1. RUXIENCE [Suspect]
     Active Substance: RITUXIMAB-PVVR
     Indication: Microscopic polyangiitis
     Dosage: 1000 MG, DAY 1 AND DAY 15 - HOSPITAL START ON 07JUL2023
     Route: 042
     Dates: start: 20230707
  2. RUXIENCE [Suspect]
     Active Substance: RITUXIMAB-PVVR
     Indication: Granulomatosis with polyangiitis
     Dosage: 1000 MG, DAY 1 AND DAY 15 - HOSPITAL START ON 07JUL2023
     Route: 042
     Dates: start: 20230720
  3. ATIVAN [Concomitant]
     Active Substance: LORAZEPAM
     Dosage: 1 MG, AS NEEDED, SL PRN
  4. CYCLOPHOSPHAMIDE [Concomitant]
     Active Substance: CYCLOPHOSPHAMIDE
     Dosage: 1 DF
  5. CALCIUM\ERGOCALCIFEROL [Concomitant]
     Active Substance: CALCIUM\ERGOCALCIFEROL
     Dosage: UNK , 1X/DAY
  6. IMURAN [Concomitant]
     Active Substance: AZATHIOPRINE
     Dosage: 75 MG, 2X/DAY
  7. LASIX [Concomitant]
     Active Substance: FUROSEMIDE
     Dosage: 40 MG, 1X/DAY
  8. PREDNISONE [Concomitant]
     Active Substance: PREDNISONE
     Dosage: 1 DF
  9. PREDNISONE [Concomitant]
     Active Substance: PREDNISONE
     Dosage: UNK, 40MG (TAPER TO 15MG THEN HOLD)

REACTIONS (6)
  - Pneumonia [Not Recovered/Not Resolved]
  - Immune system disorder [Unknown]
  - Illness [Recovered/Resolved]
  - Off label use [Unknown]
  - Off label use [Unknown]
  - Aphonia [Recovered/Resolved]

NARRATIVE: CASE EVENT DATE: 20230707
